FAERS Safety Report 20709197 (Version 4)
Quarter: 2022Q2

REPORT INFORMATION
  Report Type: Spontaneous
  Country: JP (occurrence: JP)
  Receive Date: 20220414
  Receipt Date: 20220617
  Transmission Date: 20220721
  Serious: No
  Sender: FDA-Public Use
  Company Number: JP-GLAXOSMITHKLINE-JP2022JPN062828

PATIENT

DRUGS (15)
  1. SOTROVIMAB [Suspect]
     Active Substance: SOTROVIMAB
     Indication: COVID-19
     Dosage: 500 MG
     Dates: start: 20220407, end: 20220407
  2. METOCLOPRAMIDE [Suspect]
     Active Substance: METOCLOPRAMIDE
     Indication: Vomiting
     Dosage: UNK, PRN
     Dates: start: 20210831
  3. CALONAL [Suspect]
     Active Substance: ACETAMINOPHEN
     Indication: Pyrexia
     Dosage: 1200 MG
     Dates: start: 20210419
  4. TRANSAMIN [Suspect]
     Active Substance: TRANEXAMIC ACID
     Indication: Oropharyngeal pain
     Dosage: 750 MG
     Dates: start: 20210419
  5. TRANSAMIN [Suspect]
     Active Substance: TRANEXAMIC ACID
     Dosage: 750 MG
     Dates: start: 20211208
  6. BEPOTASTINE BESYLATE [Suspect]
     Active Substance: BEPOTASTINE BESYLATE
     Indication: Rhinorrhoea
     Dosage: 20 MG
     Dates: start: 20210419
  7. HERBALS [Suspect]
     Active Substance: HERBALS
     Indication: Vomiting
     Dosage: 3 DF
     Dates: start: 20210831
  8. DEQUALINIUM CHLORIDE [Suspect]
     Active Substance: DEQUALINIUM CHLORIDE
     Indication: Oropharyngeal pain
     Dosage: 1 MG
     Dates: start: 20211208
  9. SODIUM FERROUS CITRATE [Suspect]
     Active Substance: SODIUM FERROUS CITRATE
     Indication: Anaemia
     Dosage: 100 MG
     Dates: start: 20220104
  10. VITAMINS [Suspect]
     Active Substance: VITAMINS
     Indication: Anaemia
     Dosage: 1 G
     Dates: start: 20220104
  11. PL [Suspect]
     Active Substance: ACETAMINOPHEN\CAFFEINE\PROMETHAZINE\SALICYLAMIDE
     Indication: Nasopharyngitis
     Dosage: 3 G
     Dates: start: 20220112
  12. FEXOFENADINE HYDROCHLORIDE [Suspect]
     Active Substance: FEXOFENADINE HYDROCHLORIDE
     Indication: Nasopharyngitis
     Dosage: 120 MG
     Dates: start: 20220112
  13. SODIUM BICARBONATE\SODIUM GUALENATE [Suspect]
     Active Substance: SODIUM BICARBONATE\SODIUM GUALENATE
     Indication: Nasopharyngitis
     Dosage: 6 G
     Dates: start: 20220112
  14. CAMPHOR (SYNTHETIC)\LEVOMENTHOL\METHYL SALICYLATE [Suspect]
     Active Substance: CAMPHOR (SYNTHETIC)\LEVOMENTHOL\METHYL SALICYLATE
     Indication: Sciatica
     Dosage: UNK, AS NEEDED
     Dates: start: 20220104
  15. HERBALS [Suspect]
     Active Substance: HERBALS
     Indication: Muscle spasms
     Dosage: 7.5 G
     Dates: start: 20220215

REACTIONS (2)
  - Caesarean section [Unknown]
  - Exposure during pregnancy [Unknown]

NARRATIVE: CASE EVENT DATE: 20220418
